FAERS Safety Report 21735268 (Version 2)
Quarter: 2022Q4

REPORT INFORMATION
  Report Type: Spontaneous
  Country: DE (occurrence: DE)
  Receive Date: 20221215
  Receipt Date: 20221221
  Transmission Date: 20230113
  Serious: Yes (Other)
  Sender: FDA-Public Use
  Company Number: DE-002147023-NVSC2022DE286685

PATIENT
  Sex: Male

DRUGS (2)
  1. TOBRADEX [Suspect]
     Active Substance: DEXAMETHASONE\TOBRAMYCIN
     Indication: Postoperative care
     Dosage: UNK, QID  (3MG/ML / 1MG/ML AUGENTROPFENSUSPENSION)
     Route: 065
  2. PREDNI POS [Concomitant]
     Indication: Product used for unknown indication
     Dosage: UNK (SIX TIMES DAILY)
     Route: 065

REACTIONS (5)
  - Lens dislocation [Unknown]
  - Macular oedema [Unknown]
  - Visual impairment [Unknown]
  - Anisometropia [Unknown]
  - Intraocular pressure increased [Recovered/Resolved]
